FAERS Safety Report 8718512 (Version 2)
Quarter: 2012Q4

REPORT INFORMATION
  Report Type: 
  Country: US (occurrence: US)
  Receive Date: 20120810
  Receipt Date: 20120910
  Transmission Date: 20130627
  Serious: No
  Sender: FDA-Public Use
  Company Number: US-ASTRAZENECA-2012SE53819

PATIENT
  Age: 56 Year
  Sex: Female
  Weight: 108.4 kg

DRUGS (5)
  1. SYMBICORT [Suspect]
     Indication: CHRONIC OBSTRUCTIVE PULMONARY DISEASE
     Dosage: 160/4.5 MCG, 2 PUFFS, TWO TIMES A DAY
     Route: 055
  2. SYMBICORT [Suspect]
     Indication: ASTHMA
     Dosage: 160/4.5 MCG, 2 PUFFS, TWO TIMES A DAY
     Route: 055
  3. ALBUTEROL [Concomitant]
  4. PREDNISONE [Concomitant]
  5. ANTIBIOTICS [Concomitant]

REACTIONS (7)
  - Dyspnoea [Recovering/Resolving]
  - Pulmonary congestion [Not Recovered/Not Resolved]
  - Bronchitis [Recovering/Resolving]
  - Pyrexia [Not Recovered/Not Resolved]
  - Cough [Not Recovered/Not Resolved]
  - Bronchospasm [Unknown]
  - Intentional drug misuse [Unknown]
